FAERS Safety Report 8571277-6 (Version None)
Quarter: 2012Q3

REPORT INFORMATION
  Report Type: 
  Country: None (occurrence: None)
  Receive Date: 20120806
  Receipt Date: 20120727
  Transmission Date: 20120928
  Serious: Yes (Other)
  Sender: FDA-Public Use
  Company Number: US-ABBOTT-12P-163-0961613-00

PATIENT
  Sex: Female
  Weight: 43.13 kg

DRUGS (3)
  1. PREDNISONE [Concomitant]
     Indication: CROHN'S DISEASE
  2. HUMIRA [Suspect]
     Route: 058
     Dates: start: 20110101
  3. HUMIRA [Suspect]
     Indication: CROHN'S DISEASE
     Route: 058
     Dates: start: 20090101, end: 20110101

REACTIONS (3)
  - CROHN'S DISEASE [None]
  - FISTULA DISCHARGE [None]
  - INJECTION SITE VESICLES [None]
